FAERS Safety Report 20053608 (Version 4)
Quarter: 2022Q1

REPORT INFORMATION
  Report Type: Report from Study
  Country: KR (occurrence: None)
  Receive Date: 20211110
  Receipt Date: 20220217
  Transmission Date: 20220423
  Serious: Yes (Death, Hospitalization)
  Sender: FDA-Public Use
  Company Number: KR-Eisai Medical Research-EC-2021-102817

PATIENT
  Age: 57 Year
  Sex: Female
  Weight: 62 kg

DRUGS (9)
  1. LENVIMA [Suspect]
     Active Substance: LENVATINIB
     Indication: Microsatellite instability cancer
     Route: 048
     Dates: start: 20210108, end: 20210713
  2. KEYTRUDA [Suspect]
     Active Substance: PEMBROLIZUMAB
     Indication: Microsatellite instability cancer
     Route: 041
     Dates: start: 20210108, end: 20210219
  3. KEYTRUDA [Suspect]
     Active Substance: PEMBROLIZUMAB
     Route: 041
     Dates: start: 20210319, end: 20210611
  4. KEYTRUDA [Suspect]
     Active Substance: PEMBROLIZUMAB
     Route: 041
     Dates: start: 20210714, end: 20210805
  5. KEYTRUDA [Suspect]
     Active Substance: PEMBROLIZUMAB
     Route: 041
     Dates: start: 20210908, end: 20210908
  6. ENTRESTO [Concomitant]
     Active Substance: SACUBITRIL\VALSARTAN
     Indication: Cardiomyopathy
     Dates: start: 20210325, end: 20210926
  7. LASIX [Concomitant]
     Active Substance: FUROSEMIDE
     Indication: Cardiomyopathy
     Dates: start: 20210323, end: 20210925
  8. ALDACTONE [Concomitant]
     Active Substance: SPIRONOLACTONE
     Indication: Cardiomyopathy
     Dates: start: 20210324, end: 20210926
  9. DIOVAN [Concomitant]
     Active Substance: VALSARTAN
     Indication: Cardiomyopathy
     Dates: start: 20210324, end: 20210519

REACTIONS (2)
  - Atrial thrombosis [Recovered/Resolved]
  - Cardiomyopathy [Fatal]

NARRATIVE: CASE EVENT DATE: 20210322
